FAERS Safety Report 8963480 (Version 1)
Quarter: 2012Q4

REPORT INFORMATION
  Report Type: 
  Country: US (occurrence: US)
  Receive Date: 20121213
  Receipt Date: 20121213
  Transmission Date: 20130627
  Serious: Yes (Other)
  Sender: FDA-Public Use
  Company Number: CHPA2012US024689

PATIENT
  Age: 62 Year
  Sex: Male

DRUGS (4)
  1. MAALOX ADV MAXIMUM STRENGTH ANTACID/ANTIGAS [Suspect]
     Indication: GASTROOESOPHAGEAL REFLUX DISEASE
     Dosage: Unk, Unk
     Route: 048
     Dates: start: 2006, end: 201208
  2. NEXIUM//ESOMEPRAZOLE SODIUM [Concomitant]
     Dosage: Unk, Unk
     Dates: start: 201111
  3. ANTIHYPERTENSIVES [Concomitant]
     Dosage: Unk, Unk
  4. DRUG THERAPY NOS [Concomitant]
     Dosage: Unk, Unk

REACTIONS (5)
  - Ulcer [Recovered/Resolved]
  - Barrett^s oesophagus [Recovered/Resolved]
  - Gastritis [Recovered/Resolved]
  - Therapeutic response unexpected [Unknown]
  - Off label use [Unknown]
